FAERS Safety Report 6186866-6 (Version None)
Quarter: 2009Q2

REPORT INFORMATION
  Report Type: 
  Country: None (occurrence: None)
  Receive Date: 20090508
  Receipt Date: 20090508
  Transmission Date: 20091009
  Serious: No
  Sender: FDA-Public Use
  Company Number: None

PATIENT

DRUGS (1)
  1. ABILIFY [Suspect]

REACTIONS (21)
  - ABASIA [None]
  - ANOREXIA [None]
  - ARTHRALGIA [None]
  - BLOOD GLUCOSE DECREASED [None]
  - CRYING [None]
  - DYSGEUSIA [None]
  - FAECES HARD [None]
  - FATIGUE [None]
  - FEELING ABNORMAL [None]
  - GAIT DISTURBANCE [None]
  - HYPERHIDROSIS [None]
  - HYPERSOMNIA [None]
  - JOINT SWELLING [None]
  - MUSCLE STRAIN [None]
  - MUSCULOSKELETAL STIFFNESS [None]
  - NAUSEA [None]
  - NERVE COMPRESSION [None]
  - PAIN [None]
  - PAIN IN EXTREMITY [None]
  - SENSATION OF HEAVINESS [None]
  - URINARY INCONTINENCE [None]
